FAERS Safety Report 23180914 (Version 3)
Quarter: 2023Q4

REPORT INFORMATION
  Report Type: Report from Study
  Country: NL (occurrence: None)
  Receive Date: 20231114
  Receipt Date: 20231207
  Transmission Date: 20240110
  Serious: Yes (Hospitalization)
  Sender: FDA-Public Use
  Company Number: NL-ROCHE-3456785

PATIENT
  Age: 72 Year
  Sex: Male
  Weight: 109 kg

DRUGS (20)
  1. GDC-6036 [Suspect]
     Active Substance: GDC-6036
     Indication: Non-small cell lung cancer metastatic
     Dosage: START DATE OF MOST RECENT DOSE OF STUDY DRUG PRIOR TO SAE 09-NOV-2023
     Route: 048
     Dates: start: 20230324
  2. GDC-6036 [Suspect]
     Active Substance: GDC-6036
     Dosage: START DATE OF MOST RECENT DOSE OF STUDY DRUG PRIOR TO SAE: 09/OCT/2023
     Route: 048
  3. ATEZOLIZUMAB [Suspect]
     Active Substance: ATEZOLIZUMAB
     Indication: Non-small cell lung cancer metastatic
     Dosage: START DATE OF MOST RECENT DOSE OF STUDY DRUG (1200) PRIOR TO SAE: 10/OCT/2023?START DATE OF MOST REC
     Route: 041
     Dates: start: 20230324
  4. FORMOTEROL [Concomitant]
     Active Substance: FORMOTEROL
     Indication: Chronic obstructive pulmonary disease
     Route: 055
     Dates: start: 20210621
  5. COSMETICS [Concomitant]
     Active Substance: COSMETICS
     Indication: Dry skin
     Route: 061
     Dates: start: 20230202
  6. POLYETHYLENE GLYCOLS [Concomitant]
     Active Substance: POLYETHYLENE GLYCOLS
     Indication: Constipation
     Dosage: 1 SACHET
     Route: 048
     Dates: start: 20230324
  7. TEMAZEPAM [Concomitant]
     Active Substance: TEMAZEPAM
     Indication: Insomnia
     Route: 048
     Dates: start: 20230401
  8. BETAMETHASONE [Concomitant]
     Active Substance: BETAMETHASONE\BETAMETHASONE DIPROPIONATE
     Indication: Psoriasis
     Route: 061
     Dates: start: 20230331
  9. DEXAMETHASONE [Concomitant]
     Active Substance: DEXAMETHASONE
     Indication: Psoriasis
     Route: 061
     Dates: start: 20230331
  10. LEVOMENTHOL [Concomitant]
     Active Substance: LEVOMENTHOL
     Indication: Psoriasis
     Route: 061
     Dates: start: 20230331
  11. COAL TAR [Concomitant]
     Active Substance: COAL TAR
     Indication: Psoriasis
     Route: 061
     Dates: start: 20230331
  12. EDOXABAN [Concomitant]
     Active Substance: EDOXABAN
     Indication: Pulmonary embolism
     Route: 048
     Dates: start: 20230324
  13. METOCLOPRAMIDE [Concomitant]
     Active Substance: METOCLOPRAMIDE
     Indication: Nausea
     Route: 048
     Dates: start: 20230526
  14. TIROSINT [Concomitant]
     Active Substance: LEVOTHYROXINE SODIUM
     Indication: Hypothyroidism
     Route: 048
     Dates: start: 20230616
  15. LOPERAMIDE [Concomitant]
     Active Substance: LOPERAMIDE
     Indication: Diarrhoea
     Route: 048
     Dates: start: 20230707
  16. TIROSINT [Concomitant]
     Active Substance: LEVOTHYROXINE SODIUM
     Indication: Hypothyroidism
     Route: 048
     Dates: start: 20230818
  17. CLOBETASOL [Concomitant]
     Active Substance: CLOBETASOL
     Indication: Psoriasis
     Route: 061
     Dates: start: 20230907
  18. PREDNISONE [Concomitant]
     Active Substance: PREDNISONE
     Indication: Chronic obstructive pulmonary disease
     Route: 048
     Dates: start: 20230401, end: 20231002
  19. BROMHEXINE [Concomitant]
     Active Substance: BROMHEXINE
     Indication: Productive cough
     Route: 048
     Dates: start: 20230929
  20. DOXYCYCLINE [Concomitant]
     Active Substance: DOXYCYCLINE
     Indication: Productive cough
     Dates: start: 20231006, end: 20231012

REACTIONS (1)
  - Dyspnoea [Recovered/Resolved]

NARRATIVE: CASE EVENT DATE: 20231002
